FAERS Safety Report 18392024 (Version 2)
Quarter: 2020Q4

REPORT INFORMATION
  Report Type: Report from Study
  Country: CA (occurrence: CA)
  Receive Date: 20201016
  Receipt Date: 20201020
  Transmission Date: 20210114
  Serious: Yes (Death, Other)
  Sender: FDA-Public Use
  Company Number: PHHY2015CA160700

PATIENT
  Age: 81 Year
  Sex: Male

DRUGS (1)
  1. TASIGNA [Suspect]
     Active Substance: NILOTINIB
     Indication: CHRONIC MYELOID LEUKAEMIA
     Dosage: 300 MG, BID
     Route: 048
     Dates: start: 20150331

REACTIONS (9)
  - Breast hyperplasia [Unknown]
  - Nipple swelling [Unknown]
  - Death [Fatal]
  - Dizziness [Unknown]
  - Nipple pain [Unknown]
  - Dyspnoea exertional [Unknown]
  - Pulmonary fibrosis [Not Recovered/Not Resolved]
  - Vision blurred [Unknown]
  - Haemoglobin decreased [Unknown]

NARRATIVE: CASE EVENT DATE: 20201009
